FAERS Safety Report 8882724 (Version 4)
Quarter: 2013Q1

REPORT INFORMATION
  Report Type: Report from Study
  Country: US (occurrence: US)
  Receive Date: 20121103
  Receipt Date: 20130205
  Transmission Date: 20140127
  Serious: Yes (Other)
  Sender: FDA-Public Use
  Company Number: US-US-EMD SERONO, INC.-7170962

PATIENT
  Age: 54 None
  Sex: Female
  Weight: 74 kg

DRUGS (7)
  1. REBIF [Suspect]
     Indication: MULTIPLE SCLEROSIS
     Route: 058
     Dates: start: 20120827, end: 20121031
  2. MIRAPEX [Concomitant]
     Indication: RESTLESS LEGS SYNDROME
  3. VICTOZA [Concomitant]
     Indication: DIABETES MELLITUS
  4. LISINOPRIL/HYDROCHLOROTHIAZIDE [Concomitant]
     Indication: HYPERTENSION
  5. GLIPIZIDE [Concomitant]
     Indication: DIABETES MELLITUS
  6. METFORMIN [Concomitant]
     Indication: DIABETES MELLITUS
  7. LEVIMIR [Concomitant]
     Indication: DIABETES MELLITUS

REACTIONS (7)
  - Endometrial cancer recurrent [Not Recovered/Not Resolved]
  - Cyst drainage [Unknown]
  - Blood glucose increased [Not Recovered/Not Resolved]
  - Multiple sclerosis relapse [Not Recovered/Not Resolved]
  - Pain [Not Recovered/Not Resolved]
  - Pyrexia [Not Recovered/Not Resolved]
  - Hepatic enzyme increased [Unknown]
